FAERS Safety Report 24351703 (Version 1)
Quarter: 2024Q3

REPORT INFORMATION
  Report Type: Spontaneous
  Country: CN (occurrence: CN)
  Receive Date: 20240923
  Receipt Date: 20240923
  Transmission Date: 20241017
  Serious: Yes (Hospitalization)
  Sender: ELI LILLY AND CO
  Company Number: CN-ELI_LILLY_AND_COMPANY-CN202409008530

PATIENT
  Age: 71 Year
  Sex: Female
  Weight: 35 kg

DRUGS (3)
  1. PEMETREXED [Suspect]
     Active Substance: PEMETREXED
     Indication: Lung neoplasm malignant
     Dosage: 0.5 G, SINGLE
     Route: 041
     Dates: start: 20240713, end: 20240713
  2. BEVACIZUMAB [Suspect]
     Active Substance: BEVACIZUMAB
     Indication: Lung neoplasm malignant
     Dosage: 300 MG, SINGLE
     Route: 041
     Dates: start: 20240713, end: 20240713
  3. SINTILIMAB [Suspect]
     Active Substance: SINTILIMAB
     Indication: Lung neoplasm malignant
     Dosage: 200 MG, SINGLE
     Route: 041
     Dates: start: 20240713, end: 20240713

REACTIONS (2)
  - Lung disorder [Unknown]
  - Spleen disorder [Unknown]

NARRATIVE: CASE EVENT DATE: 20240812
